FAERS Safety Report 8474801-7 (Version None)
Quarter: 2012Q2

REPORT INFORMATION
  Report Type: 
  Country: None (occurrence: None)
  Receive Date: 20120628
  Receipt Date: 20120620
  Transmission Date: 20120825
  Serious: Yes (Hospitalization)
  Sender: FDA-Public Use
  Company Number: JP-SANOFI-AVENTIS-2011SA036564

PATIENT
  Age: 85 Year
  Sex: Female
  Weight: 46 kg

DRUGS (18)
  1. PLAVIX [Suspect]
     Route: 048
     Dates: start: 20100306
  2. HEPARIN [Suspect]
     Indication: ANGINA UNSTABLE
     Dosage: DOSE:12000 UNIT(S)
     Route: 041
     Dates: start: 20100305, end: 20100308
  3. VALSARTAN [Concomitant]
     Indication: HYPERTENSION
     Route: 048
     Dates: end: 20110126
  4. CARVEDILOL [Concomitant]
     Route: 048
     Dates: start: 20100312, end: 20110126
  5. ASPIRIN [Suspect]
     Indication: CEREBRAL INFARCTION
     Route: 048
  6. HEPARIN [Suspect]
     Dosage: DOSE:8000 UNIT(S)
     Route: 042
     Dates: start: 20110125, end: 20110125
  7. TRICHLORMETHIAZIDE [Concomitant]
     Indication: HYPERTENSION
     Route: 048
     Dates: end: 20110126
  8. HEPARIN [Suspect]
     Dosage: DOSE:3000 UNIT(S)
     Route: 042
     Dates: start: 20110111, end: 20110111
  9. WARFARIN SODIUM [Concomitant]
     Route: 048
     Dates: start: 20100310
  10. ADALAT CC [Concomitant]
     Indication: HYPERTENSION
     Route: 048
  11. LANIRAPID [Concomitant]
     Indication: ANGINA UNSTABLE
     Route: 048
  12. PERSANTINE [Concomitant]
     Indication: ANGINA UNSTABLE
     Route: 048
  13. MUCOSTA [Concomitant]
     Indication: GASTRITIS
     Route: 048
     Dates: end: 20110126
  14. PLAVIX [Suspect]
     Indication: ANGINA UNSTABLE
     Route: 048
     Dates: start: 20100305, end: 20100305
  15. ASPIRIN [Suspect]
     Indication: ANGINA UNSTABLE
     Route: 048
  16. SIGMART [Concomitant]
     Indication: ANGINA UNSTABLE
     Route: 048
  17. NITRODERM [Concomitant]
     Indication: ANGINA UNSTABLE
     Route: 062
  18. TORSEMIDE [Concomitant]
     Indication: CARDIAC FAILURE
     Route: 048
     Dates: start: 20100309

REACTIONS (2)
  - VESSEL PUNCTURE SITE HAEMORRHAGE [None]
  - CORONARY ARTERY RESTENOSIS [None]
